FAERS Safety Report 24862040 (Version 1)
Quarter: 2025Q1

REPORT INFORMATION
  Report Type: Spontaneous
  Country: US (occurrence: US)
  Receive Date: 20250120
  Receipt Date: 20250120
  Transmission Date: 20250409
  Serious: Yes (Other)
  Sender: Haleon PLC
  Company Number: US-HALEON-2223578

PATIENT
  Age: 69 Year
  Sex: Female

DRUGS (2)
  1. ROBITUSSIN MAXIMUM STRENGTH COUGH PLUS CHEST CONGESTION DM [Suspect]
     Active Substance: DEXTROMETHORPHAN HYDROBROMIDE\GUAIFENESIN
     Indication: Cough
     Dates: start: 20250108, end: 20250111
  2. ROBITUSSIN MAXIMUM STRENGTH COUGH PLUS CHEST CONGESTION DM [Suspect]
     Active Substance: DEXTROMETHORPHAN HYDROBROMIDE\GUAIFENESIN
     Indication: Oropharyngeal pain

REACTIONS (8)
  - Choking [Unknown]
  - Malaise [Unknown]
  - Dry throat [Unknown]
  - Dysphagia [Unknown]
  - Insomnia [Unknown]
  - Headache [Unknown]
  - Drug ineffective [Unknown]
  - Dry mouth [Unknown]

NARRATIVE: CASE EVENT DATE: 20250108
